FAERS Safety Report 4348984-4 (Version None)
Quarter: 2004Q2

REPORT INFORMATION
  Report Type: 
  Country: None (occurrence: None)
  Receive Date: 20040428
  Receipt Date: 20040414
  Transmission Date: 20050107
  Serious: Yes (Hospitalization)
  Sender: FDA-Public Use
  Company Number: DE-BRISTOL-MYERS SQUIBB COMPANY-12566444

PATIENT
  Age: 68 Year
  Sex: Male

DRUGS (2)
  1. CETUXIMAB [Suspect]
     Indication: COLORECTAL CANCER
     Dosage: FIRST INFUSION 02-MAR-2004 ,MOST RECENTLY ADMINISTERED 30-MAR-2004
     Route: 041
     Dates: start: 20040302
  2. IRINOTECAN [Suspect]
     Indication: COLORECTAL CANCER
     Dosage: FIRST INFUSION 02-MAR-2004,MOST RECENTLY ADMINISTERED 30-MAR-2004
     Route: 042
     Dates: start: 20040302

REACTIONS (3)
  - ABDOMINAL ABSCESS [None]
  - ILEUS [None]
  - POSTOPERATIVE HERNIA [None]
